FAERS Safety Report 8526596-6 (Version None)
Quarter: 2012Q3

REPORT INFORMATION
  Report Type: 
  Country: None (occurrence: None)
  Receive Date: 20120721
  Receipt Date: 20120711
  Transmission Date: 20120928
  Serious: Yes (Death, Congenital Anomaly)
  Sender: FDA-Public Use
  Company Number: GB-TEVA-347671ISR

PATIENT

DRUGS (1)
  1. QUETIAPINE [Suspect]
     Indication: OVERDOSE
     Route: 064
     Dates: start: 20111022

REACTIONS (2)
  - FOETAL DEATH [None]
  - CONGENITAL ANOMALY [None]
